FAERS Safety Report 7903034-5 (Version None)
Quarter: 2011Q4

REPORT INFORMATION
  Report Type: 
  Country: None (occurrence: None)
  Receive Date: 20111103
  Receipt Date: 20111027
  Transmission Date: 20120403
  Serious: Yes (Hospitalization)
  Sender: FDA-Public Use
  Company Number: 2010SP064708

PATIENT
  Age: 63 Year
  Sex: Male
  Weight: 113.5 kg

DRUGS (21)
  1. PANTOPRAZOLE [Concomitant]
  2. ASCORBIC ACID [Concomitant]
  3. CITALOPRAM HYDROBROMIDE [Concomitant]
  4. DEXAMETHASONE [Concomitant]
  5. EPREX [Concomitant]
  6. LYRICA [Concomitant]
  7. IMOVANE [Concomitant]
  8. NADOLOL [Concomitant]
  9. BOCEPREVIR (SCH-503034) [Suspect]
     Indication: HEPATITIS C
     Dosage: 800 MG;TID;PO, 600 MG;TID;PO
     Route: 048
     Dates: start: 20100914
  10. IBUPROFEN [Concomitant]
  11. LASIX [Concomitant]
  12. LORAZEPAM [Concomitant]
  13. PEGINTERFERON ALFA-2B W/RIBAVIRIN (PEGYLATED INTERFERON ALFA-2B W/RIBA [Suspect]
     Indication: HEPATITIS C
     Dosage: 150 MCG;QW;SC, 120 MCG;QW;SC
     Route: 058
     Dates: start: 20100817
  14. HYDROMORPHONE HCL [Concomitant]
  15. ASPIRIN [Concomitant]
  16. RED BLOOD CELLS [Concomitant]
  17. OXYGEN [Concomitant]
  18. RIBAVIRIN [Suspect]
     Indication: HEPATITIS C
     Dosage: 1400 MG;QD;PO, 800 MG;QD;PO
     Route: 048
     Dates: start: 20100817
  19. HYDRASENSE GENTLE MIST [Concomitant]
  20. POLYSPORIN OINTMENT [Concomitant]
  21. SPIRONOLACTONE [Concomitant]

REACTIONS (8)
  - INADEQUATE DIET [None]
  - OEDEMA PERIPHERAL [None]
  - ASCITES [None]
  - SCROTAL SWELLING [None]
  - ANAEMIA [None]
  - ABDOMINAL DISTENSION [None]
  - BLOOD ALBUMIN DECREASED [None]
  - FLUID RETENTION [None]
